FAERS Safety Report 4912213-0 (Version None)
Quarter: 2006Q1

REPORT INFORMATION
  Report Type: 
  Country: None (occurrence: None)
  Receive Date: 20060215
  Receipt Date: 20051006
  Transmission Date: 20060701
  Serious: No
  Sender: FDA-Public Use
  Company Number: US-GLAXOSMITHKLINE-A0577390A

PATIENT
  Age: 46 Year
  Sex: Female

DRUGS (1)
  1. VALTREX [Suspect]
     Dosage: 1G TWICE PER DAY
     Route: 048
     Dates: start: 20050831, end: 20050902

REACTIONS (5)
  - ARTHRALGIA [None]
  - CALCINOSIS [None]
  - EYE SWELLING [None]
  - FACE OEDEMA [None]
  - HYPOAESTHESIA ORAL [None]
